FAERS Safety Report 7961846-6 (Version None)
Quarter: 2011Q4

REPORT INFORMATION
  Report Type: 
  Country: None (occurrence: None)
  Receive Date: 20111207
  Receipt Date: 20111207
  Transmission Date: 20120403
  Serious: Yes (Hospitalization)
  Sender: FDA-Public Use
  Company Number: None

PATIENT
  Age: 84 Year
  Sex: Male
  Weight: 68.038 kg

DRUGS (1)
  1. PRADAXA [Suspect]
     Indication: ANTICOAGULANT THERAPY
     Dosage: ONE CAPSULE
     Route: 048
     Dates: start: 20111018, end: 20111119

REACTIONS (6)
  - HEART RATE DECREASED [None]
  - ANAEMIA [None]
  - CHEST DISCOMFORT [None]
  - FATIGUE [None]
  - DYSPNOEA [None]
  - GASTROOESOPHAGEAL REFLUX DISEASE [None]
